FAERS Safety Report 5994103-8 (Version None)
Quarter: 2008Q4

REPORT INFORMATION
  Report Type: 
  Country: None (occurrence: None)
  Receive Date: 20081212
  Receipt Date: 20081202
  Transmission Date: 20090506
  Serious: Yes (Death, Hospitalization)
  Sender: FDA-Public Use
  Company Number: US-JNJFOC-20081101221

PATIENT
  Sex: Female
  Weight: 71.67 kg

DRUGS (8)
  1. REMICADE [Suspect]
     Indication: RHEUMATOID ARTHRITIS
     Route: 042
  2. QUINAPRIL [Suspect]
     Indication: DRUG USE FOR UNKNOWN INDICATION
  3. PREDNISONE TAB [Concomitant]
  4. TOPROL-XL [Concomitant]
  5. CALCIUM [Concomitant]
  6. FOSAMAX [Concomitant]
  7. DARVOCET [Concomitant]
  8. TRICOR [Concomitant]

REACTIONS (3)
  - CALCULUS URETERIC [None]
  - PYELONEPHRITIS ACUTE [None]
  - SEPTIC SHOCK [None]
